FAERS Safety Report 24738046 (Version 1)
Quarter: 2024Q4

REPORT INFORMATION
  Report Type: Report from Study
  Country: US (occurrence: US)
  Receive Date: 20241216
  Receipt Date: 20241216
  Transmission Date: 20250115
  Serious: Yes (Death, Other)
  Sender: TAKEDA
  Company Number: US-TAKEDA-2024TUS053436

PATIENT
  Age: 47 Year
  Sex: Male

DRUGS (4)
  1. FRUQUINTINIB [Suspect]
     Active Substance: FRUQUINTINIB
     Indication: Metastases to liver
     Dosage: 5 MILLIGRAM
  2. FRUQUINTINIB [Suspect]
     Active Substance: FRUQUINTINIB
     Indication: Colon cancer
     Dosage: 5 MILLIGRAM, QD
  3. FRUQUINTINIB [Suspect]
     Active Substance: FRUQUINTINIB
     Indication: Cholangiocarcinoma
     Dosage: UNK
  4. FRUQUINTINIB [Suspect]
     Active Substance: FRUQUINTINIB
     Dosage: 5 MILLIGRAM

REACTIONS (8)
  - Death [Fatal]
  - Headache [Unknown]
  - Skin mass [Recovering/Resolving]
  - Dry skin [Recovering/Resolving]
  - Abdominal pain upper [Unknown]
  - Somnolence [Unknown]
  - Nocturia [Unknown]
  - Fatigue [Unknown]

NARRATIVE: CASE EVENT DATE: 20241201
